FAERS Safety Report 24465425 (Version 1)
Quarter: 2024Q4

REPORT INFORMATION
  Report Type: Report from Study
  Country: US (occurrence: US)
  Receive Date: 20241018
  Receipt Date: 20241018
  Transmission Date: 20250115
  Serious: No
  Sender: ROCHE
  Company Number: US-ROCHE-3527895

PATIENT
  Age: 61 Year
  Sex: Male
  Weight: 110.0 kg

DRUGS (4)
  1. XOLAIR [Suspect]
     Active Substance: OMALIZUMAB
     Indication: Asthma
     Dosage: YES
     Route: 058
     Dates: start: 202008
  2. XOLAIR [Suspect]
     Active Substance: OMALIZUMAB
     Indication: Asthma
  3. ADVAIR HFA [Concomitant]
     Active Substance: FLUTICASONE PROPIONATE\SALMETEROL XINAFOATE
     Indication: Asthma
     Dosage: 250/50MMG TWICE A DAY
     Dates: start: 2023
  4. SPIRIVA RESPIMAT [Concomitant]
     Active Substance: TIOTROPIUM BROMIDE
     Indication: Asthma
     Dates: start: 2023

REACTIONS (2)
  - Hypertension [Not Recovered/Not Resolved]
  - Prostatomegaly [Not Recovered/Not Resolved]

NARRATIVE: CASE EVENT DATE: 20230101
